FAERS Safety Report 8084651-1 (Version None)
Quarter: 2012Q1

REPORT INFORMATION
  Report Type: 
  Country: None (occurrence: None)
  Receive Date: 20120128
  Receipt Date: 20110330
  Transmission Date: 20120608
  Serious: No
  Sender: FDA-Public Use
  Company Number: US-ABBOTT-11P-163-0715484-00

PATIENT
  Sex: Female
  Weight: 65.83 kg

DRUGS (1)
  1. HUMIRA [Suspect]
     Indication: PSORIATIC ARTHROPATHY
     Dates: start: 20110209, end: 20110309

REACTIONS (5)
  - MUSCULOSKELETAL CHEST PAIN [None]
  - MOBILITY DECREASED [None]
  - JOINT SWELLING [None]
  - ARTHRITIS [None]
  - OEDEMA PERIPHERAL [None]
